FAERS Safety Report 9322756 (Version 2)
Quarter: 2013Q3

REPORT INFORMATION
  Report Type: Spontaneous
  Country: US (occurrence: US)
  Receive Date: 20130601
  Receipt Date: 20130809
  Transmission Date: 20140515
  Serious: Yes (Hospitalization, Disabling)
  Sender: FDA-Public Use
  Company Number: US-ASTRAZENECA-2013SE38559

PATIENT
  Age: 45 Year
  Sex: Male
  Weight: 102.1 kg

DRUGS (14)
  1. NEXIUM [Suspect]
     Indication: GASTROOESOPHAGEAL REFLUX DISEASE
     Route: 048
     Dates: start: 1998, end: 2010
  2. NEXIUM [Suspect]
     Indication: GASTROOESOPHAGEAL REFLUX DISEASE
     Route: 048
     Dates: start: 20030704
  3. PREVACID [Concomitant]
     Indication: GASTROOESOPHAGEAL REFLUX DISEASE
     Dates: start: 1996, end: 1997
  4. PEPTO [Concomitant]
  5. ULTRAM [Concomitant]
     Indication: INFLAMMATION
  6. ULTRAM [Concomitant]
     Indication: PAIN
  7. LORTAB [Concomitant]
     Indication: PAIN
  8. PERCOCET [Concomitant]
     Indication: PAIN
  9. ASPIRIN [Concomitant]
     Indication: PAIN
  10. TYLENOL [Concomitant]
     Indication: PAIN
  11. MELOXICAM [Concomitant]
     Indication: ARTHRITIS
  12. TIZANIDINE [Concomitant]
     Indication: MUSCLE SPASMS
  13. LISINOPRIL [Concomitant]
     Indication: HYPERTENSION
  14. OMEPRAZOLE [Concomitant]
     Indication: GASTROOESOPHAGEAL REFLUX DISEASE

REACTIONS (12)
  - Spinal disorder [Unknown]
  - Nail injury [Unknown]
  - Osteoporosis [Unknown]
  - Bone density decreased [Unknown]
  - Bone disorder [Unknown]
  - Multiple fractures [Unknown]
  - Spinal column stenosis [Unknown]
  - Intervertebral disc degeneration [Unknown]
  - Injury [Unknown]
  - Road traffic accident [Unknown]
  - Arthritis [Unknown]
  - Major depression [Unknown]
